FAERS Safety Report 8004418-X (Version None)
Quarter: 2011Q4

REPORT INFORMATION
  Report Type: 
  Country: None (occurrence: None)
  Receive Date: 20111221
  Receipt Date: 20111221
  Transmission Date: 20120403
  Serious: Yes (Other)
  Sender: FDA-Public Use
  Company Number: None

PATIENT
  Age: 60 Year
  Sex: Female

DRUGS (7)
  1. ESTRADIOL [Concomitant]
  2. GABAPENTIN [Concomitant]
  3. MEDROXYPROGESTERONE [Concomitant]
  4. FILGRASTIM [Concomitant]
  5. PROPRANOLOL [Concomitant]
  6. LORAZEPAM [Concomitant]
  7. REVLIMID [Suspect]
     Indication: MYELODYSPLASTIC SYNDROME
     Dosage: 10 MG DAILY ORALLY
     Route: 048
     Dates: start: 20080101

REACTIONS (1)
  - NEUTROPENIA [None]
